FAERS Safety Report 23703814 (Version 1)
Quarter: 2024Q2

REPORT INFORMATION
  Report Type: Spontaneous
  Country: US (occurrence: US)
  Receive Date: 20240403
  Receipt Date: 20240403
  Transmission Date: 20240715
  Serious: No
  Sender: FDA-Public Use
  Company Number: US-VERO BIOTECH-2024001062

PATIENT

DRUGS (1)
  1. GENOSYL [Suspect]
     Active Substance: NITRIC OXIDE

REACTIONS (3)
  - Device issue [Recovered/Resolved]
  - Underdose [Recovered/Resolved]
  - Device delivery system issue [Recovered/Resolved]
